FAERS Safety Report 4390153-6 (Version None)
Quarter: 2004Q3

REPORT INFORMATION
  Report Type: 
  Country: None (occurrence: None)
  Receive Date: 20040706
  Receipt Date: 20030903
  Transmission Date: 20050211
  Serious: Yes (Hospitalization)
  Sender: FDA-Public Use
  Company Number: JP-GLAXOSMITHKLINE-B0308401A

PATIENT
  Age: 55 Year
  Sex: Female

DRUGS (17)
  1. ZOVIRAX [Suspect]
     Indication: HERPES ZOSTER
     Route: 048
     Dates: start: 20030830, end: 20030901
  2. SENNOSIDE [Concomitant]
     Indication: CONSTIPATION PROPHYLAXIS
     Dosage: 5UD PER DAY
     Route: 048
  3. SODIUM PICOSULFATE [Concomitant]
     Indication: CONSTIPATION PROPHYLAXIS
     Dosage: .5UD PER DAY
     Route: 048
  4. ASPIRIN [Concomitant]
     Indication: PROPHYLAXIS
     Dosage: 81MG PER DAY
     Route: 048
     Dates: end: 20030901
  5. REBAMIPIDE [Concomitant]
     Indication: GASTRITIS
     Dosage: 3UD PER DAY
     Route: 048
  6. FLUNITRAZEPAM [Concomitant]
     Indication: SLEEP DISORDER THERAPY
     Dosage: 1UD PER DAY
     Route: 048
     Dates: end: 20030901
  7. PRECIPITATED CALCIUM CARBONATE [Concomitant]
     Dosage: 5G PER DAY
     Route: 048
  8. LOXOPROFEN SODIUM [Concomitant]
     Indication: PAIN
     Route: 048
  9. LIDOCAINE [Concomitant]
     Indication: PAIN
     Dosage: 2UD PER DAY
  10. VIDARABINE [Concomitant]
     Indication: HERPES ZOSTER
     Route: 061
     Dates: start: 20030830
  11. HUMAN INSULIN [Concomitant]
     Indication: DIABETES MELLITUS
     Dosage: 22UNIT PER DAY
     Route: 058
  12. FORSENID [Concomitant]
     Route: 048
     Dates: end: 20030901
  13. BERBERON [Concomitant]
     Route: 048
     Dates: end: 20030901
  14. PENLES [Concomitant]
     Route: 048
  15. PURSENNID [Concomitant]
     Route: 048
     Dates: start: 20030902
  16. BAYASPIRIN [Concomitant]
     Route: 048
     Dates: start: 20030902
  17. PENFIL 50R [Concomitant]
     Indication: DIABETES MELLITUS
     Route: 058

REACTIONS (5)
  - ASTHENIA [None]
  - DEPRESSED LEVEL OF CONSCIOUSNESS [None]
  - DRUG TOXICITY [None]
  - DYSLALIA [None]
  - NERVOUS SYSTEM DISORDER [None]
